FAERS Safety Report 5295696-9 (Version None)
Quarter: 2007Q2

REPORT INFORMATION
  Report Type: 
  Country: None (occurrence: None)
  Receive Date: 20070413
  Receipt Date: 20070329
  Transmission Date: 20071010
  Serious: Yes (Hospitalization)
  Sender: FDA-Public Use
  Company Number: US-JNJFOC-20070307168

PATIENT
  Sex: Female
  Weight: 60.78 kg

DRUGS (8)
  1. INFLIXIMAB [Suspect]
     Indication: RHEUMATOID ARTHRITIS
     Route: 042
  2. FOLIC ACID [Concomitant]
  3. ZOLOFT [Concomitant]
  4. METHOTREXATE [Concomitant]
  5. CALCIUM+D [Concomitant]
  6. WARFARIN SODIUM [Concomitant]
  7. DIGITEK [Concomitant]
  8. SIMVASTATIN [Concomitant]

REACTIONS (3)
  - CARDIAC FAILURE CONGESTIVE [None]
  - EJECTION FRACTION DECREASED [None]
  - GALLBLADDER DISORDER [None]
